FAERS Safety Report 19786666 (Version 1)
Quarter: 2021Q3

REPORT INFORMATION
  Report Type: Spontaneous
  Country: US (occurrence: US)
  Receive Date: 20210903
  Receipt Date: 20210903
  Transmission Date: 20211014
  Serious: Yes (Hospitalization, Other)
  Sender: FDA-Public Use
  Company Number: US-GILEAD-2021-0546855

PATIENT
  Age: 58 Year
  Sex: Male

DRUGS (3)
  1. FLUDARABINE [Concomitant]
     Active Substance: FLUDARABINE PHOSPHATE
     Dosage: 30 MG/M2, DAYS ?5 TO ?3
     Route: 065
     Dates: start: 20210707, end: 20210709
  2. YESCARTA [Suspect]
     Active Substance: AXICABTAGENE CILOLEUCEL
     Indication: HIGH-GRADE B-CELL LYMPHOMA
     Dosage: 2 X 10^6 PER KG ANTI?CD19 CAR+ T CELLS/KG
     Route: 042
     Dates: start: 20210712, end: 20210712
  3. CYCLOPHOSPHAMIDE. [Concomitant]
     Active Substance: CYCLOPHOSPHAMIDE
     Dosage: 500 MG/M2 DAYS ?5 TO ?3
     Route: 065
     Dates: start: 20210707, end: 20210709

REACTIONS (3)
  - Neurotoxicity [Unknown]
  - Pulseless electrical activity [Unknown]
  - Cytokine release syndrome [Unknown]

NARRATIVE: CASE EVENT DATE: 202107
